FAERS Safety Report 11979813 (Version 1)
Quarter: 2016Q1

REPORT INFORMATION
  Report Type: Spontaneous
  Country: US (occurrence: US)
  Receive Date: 20160129
  Receipt Date: 20160129
  Transmission Date: 20160526
  Serious: No
  Sender: FDA-Public Use
  Company Number: US-SHIRE-US201600694

PATIENT
  Sex: Male
  Weight: 28.12 kg

DRUGS (8)
  1. INTUNIV [Suspect]
     Active Substance: GUANFACINE HYDROCHLORIDE
     Indication: ATTENTION DEFICIT/HYPERACTIVITY DISORDER
     Dosage: 1 MG, 1X/DAY:QD (BEFORE BED)
     Route: 048
     Dates: start: 2014
  2. INTUNIV [Suspect]
     Active Substance: GUANFACINE HYDROCHLORIDE
     Indication: SENSORY DISTURBANCE
     Dosage: UNK UNK, 1X/DAY:QD
     Route: 048
  3. FOCALIN                            /01611102/ [Concomitant]
     Indication: ATTENTION DEFICIT/HYPERACTIVITY DISORDER
     Dosage: 10 MG, 1X/DAY:QD
     Route: 065
     Dates: start: 201509
  4. INTUNIV [Suspect]
     Active Substance: GUANFACINE HYDROCHLORIDE
     Dosage: 3 MG, 1X/DAY:QD (BEFORE BED)
     Route: 048
     Dates: start: 201505
  5. INTUNIV [Suspect]
     Active Substance: GUANFACINE HYDROCHLORIDE
     Dosage: 2 MG, 1X/DAY:QD
     Route: 048
     Dates: start: 201505, end: 20160110
  6. INTUNIV [Suspect]
     Active Substance: GUANFACINE HYDROCHLORIDE
     Dosage: UNK
  7. INTUNIV [Suspect]
     Active Substance: GUANFACINE HYDROCHLORIDE
     Dosage: 3 MG, 1X/DAY:QD
     Route: 048
     Dates: start: 20160111, end: 20160117
  8. INTUNIV [Suspect]
     Active Substance: GUANFACINE HYDROCHLORIDE
     Dosage: 2 MG, 1X/DAY:QD
     Route: 048
     Dates: start: 20160118

REACTIONS (4)
  - Drug administered to patient of inappropriate age [Recovered/Resolved]
  - Dysuria [Not Recovered/Not Resolved]
  - Pruritus genital [Not Recovered/Not Resolved]
  - Genital pain [Not Recovered/Not Resolved]

NARRATIVE: CASE EVENT DATE: 2014
